FAERS Safety Report 6253303-2 (Version None)
Quarter: 2009Q3

REPORT INFORMATION
  Report Type: 
  Country: None (occurrence: None)
  Receive Date: 20090701
  Receipt Date: 20090629
  Transmission Date: 20100115
  Serious: Yes (Other)
  Sender: FDA-Public Use
  Company Number: US-WYE-H09973209

PATIENT
  Sex: Male

DRUGS (6)
  1. ZOSYN [Suspect]
     Indication: ALLERGENIC DESENSITISATION PROCEDURE
     Dosage: 0.02 GRAMS THEN DOSE WAS DOUBLED EVERY 15 MINUTES FOR A TOTAL DOSE OF 4.5 GRAMS
     Route: 042
     Dates: start: 20090625, end: 20090626
  2. PANCREASE [Concomitant]
     Indication: DRUG USE FOR UNKNOWN INDICATION
     Dosage: UNKNOWN
  3. INSULIN [Concomitant]
     Indication: DIABETES MELLITUS
     Dosage: UNKNOWN
  4. PROTONIX [Concomitant]
     Indication: DRUG USE FOR UNKNOWN INDICATION
     Dosage: UNKNOWN
  5. ADVAIR HFA [Concomitant]
     Indication: DRUG USE FOR UNKNOWN INDICATION
     Dosage: UNKNOWN
  6. COMBIVENT [Concomitant]
     Indication: DRUG USE FOR UNKNOWN INDICATION
     Dosage: UNKNOWN

REACTIONS (2)
  - HEART RATE INCREASED [None]
  - MYALGIA [None]
